FAERS Safety Report 15434428 (Version 1)
Quarter: 2018Q3

REPORT INFORMATION
  Report Type: Report from Study
  Country: BR (occurrence: BR)
  Receive Date: 20180927
  Receipt Date: 20180927
  Transmission Date: 20181010
  Serious: Yes (Death)
  Sender: FDA-Public Use
  Company Number: PHHY2018BR103386

PATIENT
  Sex: Female
  Weight: 78 kg

DRUGS (1)
  1. VOTRIENT [Suspect]
     Active Substance: PAZOPANIB HYDROCHLORIDE
     Indication: METASTATIC RENAL CELL CARCINOMA
     Dosage: 400 MG, BID (MORNING AND EVENING) (EVERY 12 HOURS)
     Route: 048
     Dates: start: 20180820

REACTIONS (5)
  - Neoplasm malignant [Fatal]
  - Respiratory failure [Fatal]
  - Weight decreased [Unknown]
  - Inappropriate schedule of drug administration [Unknown]
  - Drug prescribing error [Unknown]
